FAERS Safety Report 19007418 (Version 3)
Quarter: 2021Q1

REPORT INFORMATION
  Report Type: Spontaneous
  Country: DE (occurrence: DE)
  Receive Date: 20210315
  Receipt Date: 20210330
  Transmission Date: 20210420
  Serious: Yes (Hospitalization, Other)
  Sender: FDA-Public Use
  Company Number: DE-SA-2021SA083401

PATIENT
  Age: 66 Year
  Sex: Female

DRUGS (6)
  1. PREDNISOLONE. [Suspect]
     Active Substance: PREDNISOLONE
     Dosage: 4 MG, QD
  2. BENRALIZUMAB. [Suspect]
     Active Substance: BENRALIZUMAB
     Indication: ASTHMA
     Dosage: 30 MG,EVERY 2ND MONTH
     Dates: start: 20180417
  3. DUPIXENT [Suspect]
     Active Substance: DUPILUMAB
     Dosage: UNK
     Dates: start: 202004, end: 20200818
  4. RESLIZUMAB [Suspect]
     Active Substance: RESLIZUMAB
     Dosage: UNK UNK, Q4W
     Dates: start: 20170405, end: 201803
  5. PREDNISOLONE. [Suspect]
     Active Substance: PREDNISOLONE
     Dosage: 15 MG, QD
     Dates: start: 2015
  6. MEPOLIZUMAB [Suspect]
     Active Substance: MEPOLIZUMAB
     Dosage: UNK UNK, Q4W
     Route: 058
     Dates: start: 20160421

REACTIONS (8)
  - Cough [Unknown]
  - Pneumonia [Unknown]
  - Headache [Recovered/Resolved]
  - Pain [Unknown]
  - Osteopenia [Unknown]
  - Arthralgia [Recovering/Resolving]
  - Pain in extremity [Unknown]
  - Chest pain [Recovered/Resolved]

NARRATIVE: CASE EVENT DATE: 202005
